FAERS Safety Report 6436473-2 (Version None)
Quarter: 2009Q4

REPORT INFORMATION
  Report Type: 
  Country: None (occurrence: None)
  Receive Date: 20091110
  Receipt Date: 20080229
  Transmission Date: 20100525
  Serious: No
  Sender: FDA-Public Use
  Company Number: AEUSA200800047

PATIENT
  Age: 25 Year
  Sex: Female

DRUGS (1)
  1. GAMUNEX [Suspect]
     Indication: SCLERODERMA
     Dosage: 40 GM; QD; IV
     Route: 042
     Dates: start: 20080226, end: 20080228

REACTIONS (1)
  - HYPONATRAEMIA [None]
